FAERS Safety Report 9286128 (Version 1)
Quarter: 2013Q2

REPORT INFORMATION
  Report Type: Spontaneous
  Country: US (occurrence: US)
  Receive Date: 20130513
  Receipt Date: 20130513
  Transmission Date: 20140414
  Serious: Yes (Other)
  Sender: FDA-Public Use
  Company Number: US-ASTRAZENECA-2013SE31205

PATIENT
  Age: 77 Year
  Sex: Female
  Weight: 61.7 kg

DRUGS (6)
  1. ARIMIDEX [Suspect]
     Indication: BREAST CANCER FEMALE
     Route: 048
  2. SYMBICORT [Suspect]
     Route: 055
  3. DILTIRAZEM [Concomitant]
     Indication: CARDIAC DISORDER
  4. GABAPENTIN [Concomitant]
     Indication: NEURALGIA
  5. GABAPENTIN [Concomitant]
     Indication: BACK PAIN
  6. IPRATROPIUM [Concomitant]
     Indication: DYSPNOEA
     Dosage: 0.2 UNKNOWN UNITS

REACTIONS (2)
  - Lung neoplasm malignant [Unknown]
  - Haematemesis [Unknown]
